FAERS Safety Report 7539279-6 (Version None)
Quarter: 2011Q2

REPORT INFORMATION
  Report Type: 
  Country: None (occurrence: None)
  Receive Date: 20110610
  Receipt Date: 20110601
  Transmission Date: 20111010
  Serious: Yes (Other)
  Sender: FDA-Public Use
  Company Number: GB-ELI_LILLY_AND_COMPANY-GB201106000448

PATIENT
  Sex: Female

DRUGS (2)
  1. INSULIN [Concomitant]
  2. HUMULIN 70/30 [Suspect]

REACTIONS (1)
  - MENINGITIS [None]
